FAERS Safety Report 24683757 (Version 1)
Quarter: 2024Q4

REPORT INFORMATION
  Report Type: Spontaneous
  Country: CN (occurrence: CN)
  Receive Date: 20241202
  Receipt Date: 20241202
  Transmission Date: 20250115
  Serious: Yes (Life-Threatening, Other)
  Sender: JIANGSU HANSOH PHARMACEUTICAL
  Company Number: CN-Jiangsu Hansoh Pharmaceutical Co., Ltd-2166283

PATIENT
  Age: 56 Year
  Sex: Male
  Weight: 52 kg

DRUGS (3)
  1. GEMCITABINE HYDROCHLORIDE [Suspect]
     Active Substance: GEMCITABINE HYDROCHLORIDE
     Indication: Malignant neoplasm of renal pelvis
     Dates: start: 20241029, end: 20241029
  2. CISPLATIN [Suspect]
     Active Substance: CISPLATIN
     Dates: start: 20241029, end: 20241031
  3. TORIPALIMAB [Suspect]
     Active Substance: TORIPALIMAB
     Dates: start: 20241029, end: 20241029

REACTIONS (2)
  - Myelosuppression [Recovering/Resolving]
  - Off label use [Unknown]

NARRATIVE: CASE EVENT DATE: 20241103
